FAERS Safety Report 18889214 (Version 1)
Quarter: 2021Q1

REPORT INFORMATION
  Report Type: Spontaneous
  Country: US (occurrence: US)
  Receive Date: 20210212
  Receipt Date: 20210212
  Transmission Date: 20210420
  Serious: No
  Sender: FDA-Public Use
  Company Number: US-SA-2021SA043105

PATIENT
  Age: 56 Year
  Sex: Female

DRUGS (1)
  1. DUPIXENT [Suspect]
     Active Substance: DUPILUMAB
     Indication: ASTHMA
     Dosage: 300MG, QOW
     Route: 058

REACTIONS (5)
  - Mitral valve prolapse [Unknown]
  - Multiple allergies [Unknown]
  - Injection site pain [Unknown]
  - Unevaluable event [Unknown]
  - Migraine [Unknown]

NARRATIVE: CASE EVENT DATE: 2020
